FAERS Safety Report 8783098 (Version 1)
Quarter: 2012Q4

REPORT INFORMATION
  Report Type: Report from Study
  Country: CA (occurrence: CA)
  Receive Date: 20120913
  Receipt Date: 20120913
  Transmission Date: 20130627
  Serious: Yes (Other)
  Sender: FDA-Public Use
  Company Number: CA-JNJFOC-20120902909

PATIENT
  Age: 68 Year
  Sex: Male
  Weight: 109.32 kg

DRUGS (9)
  1. REMICADE [Suspect]
     Indication: PSORIATIC ARTHROPATHY
     Route: 042
     Dates: start: 20110713
  2. REMICADE [Suspect]
     Indication: PSORIATIC ARTHROPATHY
     Route: 042
  3. ATENOLOL [Concomitant]
     Route: 065
  4. METHOTREXATE [Concomitant]
     Dosage: every Friday
     Route: 065
  5. APO HYDRO [Concomitant]
     Route: 065
  6. APO-FOLIC [Concomitant]
     Dosage: half tablet daily except Friday
     Route: 065
  7. OMEPRAZOLE [Concomitant]
     Route: 065
  8. SALBUTAMOL [Concomitant]
     Dosage: puffs
     Route: 042
  9. FLOVENT [Concomitant]
     Dosage: 2 puffs twice daily
     Route: 065

REACTIONS (1)
  - Wound haemorrhage [Recovering/Resolving]
